FAERS Safety Report 7713554-4 (Version None)
Quarter: 2011Q3

REPORT INFORMATION
  Report Type: 
  Country: None (occurrence: None)
  Receive Date: 20110826
  Receipt Date: 20110819
  Transmission Date: 20111222
  Serious: Yes (Other)
  Sender: FDA-Public Use
  Company Number: US-B.I. PHARMACEUTICALS,INC./RIDGEFIELD-2011-BP-20527BP

PATIENT
  Age: 70 Year
  Sex: Male

DRUGS (7)
  1. VIAGRA [Suspect]
  2. NEXIUM [Suspect]
     Dosage: 80 MG
  3. KETOCONAZOLE [Suspect]
     Route: 061
  4. FLUTICASONE PROPIONATE [Suspect]
  5. ASPIRIN [Suspect]
     Dosage: 81 MG
  6. ADVAIR DISKUS 100/50 [Suspect]
  7. FLOMAX [Suspect]
     Dosage: 0.4 MG
     Route: 048

REACTIONS (5)
  - PULMONARY GRANULOMA [None]
  - HELICOBACTER INFECTION [None]
  - GASTROOESOPHAGEAL REFLUX DISEASE [None]
  - DIVERTICULUM [None]
  - CHRONIC OBSTRUCTIVE PULMONARY DISEASE [None]
